APPROVED DRUG PRODUCT: ATROMID-S
Active Ingredient: CLOFIBRATE
Strength: 500MG
Dosage Form/Route: CAPSULE;ORAL
Application: N016099 | Product #002
Applicant: WYETH AYERST LABORATORIES
Approved: Approved Prior to Jan 1, 1982 | RLD: No | RS: No | Type: DISCN